FAERS Safety Report 25061282 (Version 2)
Quarter: 2025Q2

REPORT INFORMATION
  Report Type: Spontaneous
  Country: US (occurrence: US)
  Receive Date: 20250311
  Receipt Date: 20250415
  Transmission Date: 20250717
  Serious: Yes (Death, Other)
  Sender: SAREPTA THERAPEUTICS
  Company Number: US-SAREPTA THERAPEUTICS INC.-SRP2025-005687

PATIENT
  Age: 14 Year
  Sex: Male
  Weight: 61 kg

DRUGS (6)
  1. VYONDYS 53 [Suspect]
     Active Substance: GOLODIRSEN
     Indication: Duchenne muscular dystrophy
     Route: 042
     Dates: start: 202006, end: 20250224
  2. CHOLECALCIFEROL [Concomitant]
     Active Substance: CHOLECALCIFEROL
     Indication: Product used for unknown indication
     Dosage: 2000 INTERNATIONAL UNIT, QD
  3. ENTRESTO [Concomitant]
     Active Substance: SACUBITRIL\VALSARTAN
     Indication: Product used for unknown indication
     Dosage: UNK UNK, BID
  4. COREG [Concomitant]
     Active Substance: CARVEDILOL
     Indication: Product used for unknown indication
     Dosage: 3.125 MILLIGRAM, BID
  5. EPLERENONE [Concomitant]
     Active Substance: EPLERENONE
     Indication: Product used for unknown indication
  6. VAMOROLONE [Concomitant]
     Active Substance: VAMOROLONE
     Indication: Product used for unknown indication
     Dosage: 200 MILLIGRAM, QD

REACTIONS (4)
  - Cardiac arrest [Fatal]
  - Aspiration [Unknown]
  - Diarrhoea [Unknown]
  - Vomiting [Unknown]

NARRATIVE: CASE EVENT DATE: 20250225
